FAERS Safety Report 26012328 (Version 1)
Quarter: 2025Q4

REPORT INFORMATION
  Report Type: Spontaneous
  Country: US (occurrence: US)
  Receive Date: 20251107
  Receipt Date: 20251107
  Transmission Date: 20260118
  Serious: Yes (Life-Threatening, Hospitalization)
  Sender: CIPLA
  Company Number: US-CIPLA LTD.-2025US14013

PATIENT

DRUGS (3)
  1. AMLODIPINE [Suspect]
     Active Substance: AMLODIPINE BESYLATE
     Dosage: 870 MILLIGRAM (87 TABLETS OF 10 MG AMLODIPINE)
     Route: 048
  2. HYDROCHLOROTHIAZIDE\LOSARTAN [Concomitant]
     Active Substance: HYDROCHLOROTHIAZIDE\LOSARTAN
     Dosage: 90 DOSAGE FORM
     Route: 048
  3. LEVOTHYROXINE [Concomitant]
     Active Substance: LEVOTHYROXINE
     Dosage: 20-30 TABLETS OF 175 MICROGRAM LEVOTHYROXINE
     Route: 048

REACTIONS (2)
  - Intentional overdose [Unknown]
  - Hypotension [Unknown]
